FAERS Safety Report 19490308 (Version 3)
Quarter: 2021Q3

REPORT INFORMATION
  Report Type: Report from Study
  Country: None (occurrence: US)
  Receive Date: 20210705
  Receipt Date: 20210915
  Transmission Date: 20211014
  Serious: Yes (Other)
  Sender: FDA-Public Use
  Company Number: US-ABBVIE-20K-163-3673361-00

PATIENT
  Age: 64 Year
  Sex: Female
  Weight: 127.12 kg

DRUGS (9)
  1. FAMOTIDINE. [Concomitant]
     Active Substance: FAMOTIDINE
     Indication: GASTRIC DISORDER
  2. HUMIRA [Suspect]
     Active Substance: ADALIMUMAB
     Route: 058
  3. ASPIRIN. [Concomitant]
     Active Substance: ASPIRIN
     Indication: CARDIAC DISORDER
  4. HUMIRA [Suspect]
     Active Substance: ADALIMUMAB
     Indication: ANKYLOSING SPONDYLITIS
     Dosage: CITRATE FREE
     Route: 058
     Dates: start: 2017, end: 202010
  5. METOPROLOL. [Concomitant]
     Active Substance: METOPROLOL
     Indication: BLOOD PRESSURE MEASUREMENT
  6. HUMIRA [Suspect]
     Active Substance: ADALIMUMAB
     Dosage: CITRATE FREE
     Route: 058
     Dates: start: 202102
  7. MELOXICAM. [Concomitant]
     Active Substance: MELOXICAM
     Indication: PAIN
  8. ESCITALOPRAM [Concomitant]
     Active Substance: ESCITALOPRAM OXALATE
     Indication: DEPRESSION
  9. NITROGLYCERIN. [Concomitant]
     Active Substance: NITROGLYCERIN
     Indication: CARDIAC DISORDER

REACTIONS (14)
  - Fibrin D dimer increased [Unknown]
  - Liver function test increased [Recovered/Resolved]
  - Musculoskeletal chest pain [Recovering/Resolving]
  - Cholelithiasis [Recovered/Resolved]
  - Cardiac disorder [Unknown]
  - Microvascular coronary artery disease [Not Recovered/Not Resolved]
  - Catheterisation cardiac [Recovering/Resolving]
  - Ankylosing spondylitis [Recovering/Resolving]
  - Liver function test increased [Unknown]
  - Asthma [Not Recovered/Not Resolved]
  - Malaise [Unknown]
  - Sciatic nerve neuropathy [Recovering/Resolving]
  - COVID-19 [Recovered/Resolved]
  - Pain [Recovering/Resolving]

NARRATIVE: CASE EVENT DATE: 2020
